FAERS Safety Report 4667756-4 (Version None)
Quarter: 2005Q2

REPORT INFORMATION
  Report Type: 
  Country: None (occurrence: None)
  Receive Date: 20050520
  Receipt Date: 20050513
  Transmission Date: 20051028
  Serious: Yes (Congenital Anomaly)
  Sender: FDA-Public Use
  Company Number: BPC-SR-033

PATIENT
  Sex: Female

DRUGS (1)
  1. BUPROPION [Suspect]
     Indication: DRUG USE FOR UNKNOWN INDICATION
     Dosage: 150MG PER DAY
     Dates: start: 20040218

REACTIONS (4)
  - DRUG EXPOSURE DURING PREGNANCY [None]
  - FAILURE TO THRIVE [None]
  - LARYNGOMALACIA [None]
  - STRIDOR [None]
